FAERS Safety Report 8906170 (Version 1)
Quarter: 2012Q4

REPORT INFORMATION
  Report Type: Spontaneous
  Country: CO (occurrence: None)
  Receive Date: 20121109
  Receipt Date: 20121109
  Transmission Date: 20130627
  Serious: Yes (Hospitalization)
  Sender: FDA-Public Use
  Company Number: DSU-2012-05639

PATIENT
  Age: 44 Year
  Sex: Male

DRUGS (6)
  1. OLMETEC (OLMESARTAN MEDOXOMIL) [Suspect]
     Indication: HYPERTENSION
     Route: 048
     Dates: start: 2008
  2. OLMETEC (OLMESARTAN MEDOXOMIL) [Suspect]
     Indication: BLOOD PRESSURE
     Route: 048
     Dates: start: 2008
  3. OLMETEC (OLMESARTAN MEDOXOMIL) [Suspect]
     Indication: HYPERTENSION
     Route: 048
     Dates: start: 2009
  4. OLMETEC (OLMESARTAN MEDOXOMIL) [Suspect]
     Indication: BLOOD PRESSURE
     Route: 048
     Dates: start: 2009
  5. SYNTHROID (LEVOTHYROXINE SODIUM) (LEVOTHYROXINE SODIUIM) [Concomitant]
  6. OMEPRAZOLE (OMEPRAZOLE) [Concomitant]

REACTIONS (3)
  - Seborrhoeic dermatitis [None]
  - Dermatitis atopic [None]
  - Stress [None]
